FAERS Safety Report 20864699 (Version 2)
Quarter: 2022Q2

REPORT INFORMATION
  Report Type: Spontaneous
  Country: US (occurrence: US)
  Receive Date: 20220524
  Receipt Date: 20220621
  Transmission Date: 20220720
  Serious: No
  Sender: FDA-Public Use
  Company Number: US-PCCINC-2022-PEL-000230

PATIENT

DRUGS (1)
  1. GABLOFEN [Suspect]
     Active Substance: BACLOFEN
     Indication: Muscle spasticity
     Dosage: 1512 MCG/DAY
     Route: 037

REACTIONS (4)
  - Respiratory rate increased [Unknown]
  - Muscle tightness [Unknown]
  - Tremor [Unknown]
  - Heart rate increased [Unknown]
